FAERS Safety Report 14055357 (Version 1)
Quarter: 2017Q4

REPORT INFORMATION
  Report Type: Spontaneous
  Country: IT (occurrence: IT)
  Receive Date: 20171006
  Receipt Date: 20171006
  Transmission Date: 20180321
  Serious: Yes (Hospitalization, Other)
  Sender: FDA-Public Use
  Company Number: IT-BRISTOL-MYERS SQUIBB COMPANY-BMS-2017-085771

PATIENT
  Age: 86 Year
  Sex: Female

DRUGS (2)
  1. COUMADIN [Suspect]
     Active Substance: WARFARIN SODIUM
     Indication: ATRIAL FIBRILLATION
     Dosage: UNK
     Route: 048
     Dates: start: 20160101, end: 20161121
  2. METFORMIN [Concomitant]
     Active Substance: METFORMIN HYDROCHLORIDE
     Indication: PRODUCT USED FOR UNKNOWN INDICATION
     Route: 065

REACTIONS (9)
  - Fall [Unknown]
  - Presyncope [Unknown]
  - Anaemia [Unknown]
  - Abdominal pain upper [Unknown]
  - Vertigo [Unknown]
  - Asthenia [Unknown]
  - Dizziness [Unknown]
  - Melaena [Unknown]
  - Head injury [Unknown]

NARRATIVE: CASE EVENT DATE: 20161120
